FAERS Safety Report 6683019-X (Version None)
Quarter: 2010Q2

REPORT INFORMATION
  Report Type: 
  Country: None (occurrence: None)
  Receive Date: 20100415
  Receipt Date: 20100407
  Transmission Date: 20101027
  Serious: Yes (Other)
  Sender: FDA-Public Use
  Company Number: US-ASTRAZENECA-2010SE15156

PATIENT
  Sex: Female
  Weight: 49.9 kg

DRUGS (13)
  1. SEROQUEL [Suspect]
     Indication: DEPRESSION
     Route: 048
     Dates: start: 20070101
  2. ENTOCORT EC [Concomitant]
     Indication: CROHN'S DISEASE
  3. FLUOXETINE [Concomitant]
     Indication: ANTIDEPRESSANT THERAPY
  4. METOPROLOL TARTRATE [Concomitant]
  5. OMEPRAZOLE [Concomitant]
  6. LOPIRAMIDE [Concomitant]
  7. PREVACID [Concomitant]
  8. AZATHIOPRINE [Concomitant]
  9. HYDROCODONE BITARTRATE [Concomitant]
  10. SKILAXIN [Concomitant]
  11. LIPITOR [Concomitant]
  12. ENABLEX [Concomitant]
  13. ROPINIROLE [Concomitant]

REACTIONS (3)
  - COMPRESSION FRACTURE [None]
  - HIP FRACTURE [None]
  - OSTEOPOROSIS [None]
